FAERS Safety Report 7808761-6 (Version None)
Quarter: 2011Q4

REPORT INFORMATION
  Report Type: 
  Country: None (occurrence: None)
  Receive Date: 20111007
  Receipt Date: 20110925
  Transmission Date: 20120403
  Serious: Yes (Death, Hospitalization)
  Sender: FDA-Public Use
  Company Number: 2011SGN00134

PATIENT
  Age: 48 Year
  Sex: Male
  Weight: 96.6 kg

DRUGS (8)
  1. SYNTHROID [Concomitant]
  2. FLUCONAZOLE [Concomitant]
  3. MORPHINE [Concomitant]
  4. SGN-35 (CAC10-VCMMAE) INJECTION BRENTUXIMAB [Suspect]
     Indication: HODGKIN'S DISEASE
     Dosage: 1.8 MG/KG,Q21D, INTRAVENOUS
     Route: 042
     Dates: start: 20110429, end: 20110610
  5. SPIRIVA [Concomitant]
  6. SYMBICORT [Concomitant]
  7. COMPAZINE (PROCHIORPERAZINE MALEATE) [Concomitant]
  8. ATIVAN [Concomitant]

REACTIONS (4)
  - CEREBRAL INFARCTION [None]
  - GENERAL PHYSICAL HEALTH DETERIORATION [None]
  - PROGRESSIVE MULTIFOCAL LEUKOENCEPHALOPATHY [None]
  - WHEELCHAIR USER [None]
